FAERS Safety Report 22132359 (Version 3)
Quarter: 2024Q1

REPORT INFORMATION
  Report Type: Spontaneous
  Country: US (occurrence: US)
  Receive Date: 20230323
  Receipt Date: 20240124
  Transmission Date: 20240409
  Serious: No
  Sender: FDA-Public Use
  Company Number: US-SA-SAC20230323000311

PATIENT
  Age: 68 Year
  Sex: Female
  Weight: 61.2 kg

DRUGS (1)
  1. DUPIXENT [Suspect]
     Active Substance: DUPILUMAB
     Indication: Dermatitis atopic
     Dosage: 300 MG, QOW
     Route: 058
     Dates: start: 20220706

REACTIONS (4)
  - Eye infection [Recovering/Resolving]
  - Ocular discomfort [Unknown]
  - Hordeolum [Recovered/Resolved]
  - Blepharitis [Recovering/Resolving]

NARRATIVE: CASE EVENT DATE: 20230311
